FAERS Safety Report 9210994 (Version 1)
Quarter: 2013Q2

REPORT INFORMATION
  Report Type: Spontaneous
  Country: US (occurrence: US)
  Receive Date: 20130404
  Receipt Date: 20130404
  Transmission Date: 20140414
  Serious: Yes (Other)
  Sender: FDA-Public Use
  Company Number: US-PFIZER INC-2013103134

PATIENT
  Sex: Female

DRUGS (3)
  1. PREPARATION H [Suspect]
     Indication: HAEMORRHOIDS
     Dosage: UNK, TWO TIMES A DAY
     Dates: start: 20130323, end: 20130326
  2. DECITABINE [Concomitant]
     Indication: NEOPLASM MALIGNANT
     Dosage: UNK
  3. AVASTIN [Concomitant]
     Indication: NEOPLASM MALIGNANT
     Dosage: UNK

REACTIONS (2)
  - Hypertension [Unknown]
  - Blood pressure fluctuation [Unknown]
